FAERS Safety Report 18373051 (Version 1)
Quarter: 2020Q4

REPORT INFORMATION
  Report Type: Spontaneous
  Country: US (occurrence: US)
  Receive Date: 20201012
  Receipt Date: 20201012
  Transmission Date: 20210114
  Serious: Yes (Other)
  Sender: FDA-Public Use
  Company Number: US-FRESENIUS KABI-FK202010436

PATIENT
  Age: 63 Year
  Sex: Female
  Weight: 70 kg

DRUGS (3)
  1. REMIFENTANIL HYDROCHLORIDE. [Suspect]
     Active Substance: REMIFENTANIL HYDROCHLORIDE
     Indication: ANAESTHESIA
     Dosage: IS THERAPY STILL ONGOING: NO
     Route: 040
  2. REMIFENTANIL HYDROCHLORIDE FOR INJECTION [Suspect]
     Active Substance: REMIFENTANIL HYDROCHLORIDE
     Indication: ANAESTHESIA
     Dosage: TOTAL OF 300 MCG IN DIVIDED DOSES WERE GIVEN?IS THERAPY STILL ONGOING: NO
     Route: 040
  3. REMIFENTANIL HYDROCHLORIDE FOR INJECTION [Suspect]
     Active Substance: REMIFENTANIL HYDROCHLORIDE
     Dosage: TOTAL OF 300 MCG IN DIVIDED DOSES WERE GIVEN?IS THERAPY STILL ONGOING: NO
     Route: 040

REACTIONS (3)
  - Drug ineffective [Unknown]
  - Tremor [Unknown]
  - Panic reaction [Unknown]
